FAERS Safety Report 9333436 (Version 3)
Quarter: 2013Q4

REPORT INFORMATION
  Report Type: Spontaneous
  Country: US (occurrence: US)
  Receive Date: 20130606
  Receipt Date: 20131126
  Transmission Date: 20140711
  Serious: Yes (Hospitalization)
  Sender: FDA-Public Use
  Company Number: US-B.I. PHARMACEUTICALS,INC./RIDGEFIELD-2013-BI-15782BP

PATIENT
  Age: 80 Year
  Sex: Female
  Weight: 63.96 kg

DRUGS (7)
  1. PRADAXA [Suspect]
     Indication: ANTICOAGULANT THERAPY
     Dosage: 300 MG
     Route: 048
     Dates: start: 20110713, end: 20120402
  2. FOSAMAX [Concomitant]
     Dates: start: 2006, end: 2012
  3. LOSARTAN HCTZ [Concomitant]
     Dates: start: 2010, end: 2012
  4. METOPROLOL [Concomitant]
     Dates: start: 2010, end: 2012
  5. NORVASC [Concomitant]
     Dosage: 5 MG
     Route: 048
  6. POTASSIUM [Concomitant]
     Dates: start: 2010, end: 2012
  7. LASIX [Concomitant]

REACTIONS (3)
  - Gastrointestinal haemorrhage [Unknown]
  - Rectal haemorrhage [Unknown]
  - Anaemia [Unknown]
